FAERS Safety Report 20377827 (Version 14)
Quarter: 2023Q2

REPORT INFORMATION
  Report Type: Report from Study
  Country: TR (occurrence: None)
  Receive Date: 20220126
  Receipt Date: 20230622
  Transmission Date: 20230722
  Serious: Yes (Hospitalization)
  Sender: FDA-Public Use
  Company Number: TR-ROCHE-3004721

PATIENT
  Age: 74 Year
  Sex: Male
  Weight: 74 kg

DRUGS (4)
  1. TIRAGOLUMAB [Suspect]
     Active Substance: TIRAGOLUMAB
     Indication: Lung squamous cell carcinoma stage III
     Dosage: DOSE LAST STUDY DRUG ADMIN PRIOR AE AND SAE 840 MG. ON 28/DEC/2021, START DATE OF MOST RECENT DOSE O
     Route: 042
     Dates: start: 20210615
  2. ATEZOLIZUMAB [Suspect]
     Active Substance: ATEZOLIZUMAB
     Indication: Lung squamous cell carcinoma stage III
     Dosage: DOSE LAST STUDY DRUG ADMIN PRIOR AE AND SAE 1680 MG. ON 28/DEC/2021, START DATE OF MOST RECENT DOSE
     Route: 041
     Dates: start: 20210615
  3. MAXIDEX [Concomitant]
     Active Substance: DEXAMETHASONE
     Indication: Macular degeneration
  4. PRABEX [Concomitant]

REACTIONS (2)
  - Immune-mediated lung disease [Recovered/Resolved]
  - Pleural infection [Recovered/Resolved]

NARRATIVE: CASE EVENT DATE: 20220116
